FAERS Safety Report 5180938-0 (Version None)
Quarter: 2006Q4

REPORT INFORMATION
  Report Type: 
  Country: None (occurrence: None)
  Receive Date: 20061214
  Receipt Date: 20061214
  Transmission Date: 20070319
  Serious: Yes (Other)
  Sender: FDA-Public Use
  Company Number: None

PATIENT
  Age: 56 Year
  Sex: Female
  Weight: 56.6996 kg

DRUGS (2)
  1. ACTONEL [Suspect]
     Indication: OSTEOPOROSIS
     Dosage: 3 PILLS   1 PER WEEK
     Dates: start: 20050527
  2. ACTONEL [Suspect]
     Indication: OSTEOPOROSIS
     Dosage: 3 PILLS   1 PER WEEK
     Dates: start: 20050829

REACTIONS (4)
  - ARTHRALGIA [None]
  - AURICULAR SWELLING [None]
  - OCULAR HYPERAEMIA [None]
  - POLYCHONDRITIS [None]
